FAERS Safety Report 10483696 (Version 1)
Quarter: 2014Q3

REPORT INFORMATION
  Report Type: Spontaneous
  Country: US (occurrence: None)
  Receive Date: 20140929
  Receipt Date: 20140929
  Transmission Date: 20150326
  Serious: Yes (Other)
  Sender: FDA-Public Use
  Company Number: None

PATIENT
  Age: 40 Year
  Sex: Female
  Weight: 104.33 kg

DRUGS (1)
  1. ZOFRAN [Suspect]
     Active Substance: ONDANSETRON HYDROCHLORIDE
     Indication: NAUSEA
     Dosage: ONE TIME ONLY INTO A VEIN
     Route: 042

REACTIONS (7)
  - Feeling jittery [None]
  - Generalised tonic-clonic seizure [None]
  - Palpitations [None]
  - Dizziness [None]
  - Extrapyramidal disorder [None]
  - Headache [None]
  - Dyskinesia [None]

NARRATIVE: CASE EVENT DATE: 20140925
